FAERS Safety Report 8391483-3 (Version None)
Quarter: 2012Q2

REPORT INFORMATION
  Report Type: 
  Country: None (occurrence: None)
  Receive Date: 20120529
  Receipt Date: 20120523
  Transmission Date: 20120825
  Serious: Yes (Other)
  Sender: FDA-Public Use
  Company Number: US-BAYER-2012-052269

PATIENT
  Age: 24 Year
  Sex: Female

DRUGS (9)
  1. YAZ [Suspect]
     Indication: PREMENSTRUAL SYNDROME
     Dosage: UNK
     Dates: start: 20100108, end: 20110205
  2. DROSPIRENONE AND ETHINYL ESTRADIOL [Suspect]
     Indication: ACNE
     Dosage: UNK
     Dates: start: 20110701, end: 20110901
  3. DROSPIRENONE AND ETHINYL ESTRADIOL [Suspect]
     Indication: PREMENSTRUAL SYNDROME
  4. YAZ [Suspect]
     Indication: MENORRHAGIA
  5. YAZ [Suspect]
     Indication: ACNE
  6. DROSPIRENONE AND ETHINYL ESTRADIOL [Suspect]
  7. YAZ [Suspect]
     Dosage: UNK
     Dates: start: 20110506, end: 20110605
  8. YAZ [Suspect]
     Indication: CONTRACEPTION
  9. WELLBUTRIN [Concomitant]

REACTIONS (5)
  - CHOLELITHIASIS [None]
  - CHOLECYSTITIS CHRONIC [None]
  - NAUSEA [None]
  - VOMITING [None]
  - ABDOMINAL PAIN UPPER [None]
